FAERS Safety Report 13362818 (Version 1)
Quarter: 2017Q1

REPORT INFORMATION
  Report Type: Report from Study
  Country: US (occurrence: US)
  Receive Date: 20170323
  Receipt Date: 20170323
  Transmission Date: 20170429
  Serious: Yes (Hospitalization)
  Sender: FDA-Public Use
  Company Number: US-PFIZER INC-2017109552

PATIENT
  Age: 70 Year
  Sex: Male
  Weight: 78.15 kg

DRUGS (1)
  1. PALBOCICLIB [Suspect]
     Active Substance: PALBOCICLIB
     Indication: SQUAMOUS CELL CARCINOMA OF LUNG
     Dosage: 125 MG, DAILY ON DAYS 1-21
     Route: 048
     Dates: start: 20151201, end: 20170207

REACTIONS (2)
  - Dyspnoea [Not Recovered/Not Resolved]
  - Upper respiratory tract infection [Not Recovered/Not Resolved]

NARRATIVE: CASE EVENT DATE: 20170306
